FAERS Safety Report 22345263 (Version 4)
Quarter: 2024Q3

REPORT INFORMATION
  Report Type: Spontaneous
  Country: US (occurrence: US)
  Receive Date: 20230519
  Receipt Date: 20240705
  Transmission Date: 20241016
  Serious: Yes (Hospitalization, Other)
  Sender: PFIZER
  Company Number: US-PFIZER INC-202300192315

PATIENT
  Age: 65 Year
  Sex: Female

DRUGS (6)
  1. IBRANCE [Suspect]
     Active Substance: PALBOCICLIB
     Dosage: 125 MG, CYCLIC (ONE 125MG TABLET ORALLY DAILY, 3 WEEKS ON, ONE WEEK OFF)
     Route: 048
     Dates: start: 202209
  2. IBRANCE [Suspect]
     Active Substance: PALBOCICLIB
     Dosage: 125 MG, DAILY ON DAYS 1 THROUGH 21 OF A 28 DAY CYCLE
     Route: 048
     Dates: start: 2023
  3. EXEMESTANE [Suspect]
     Active Substance: EXEMESTANE
     Dosage: UNK
  4. OXYCODONE [Concomitant]
     Active Substance: OXYCODONE
     Dosage: UNK
  5. GABAPENTIN [Concomitant]
     Active Substance: GABAPENTIN
     Dosage: UNK
  6. LISINOPRIL [Concomitant]
     Active Substance: LISINOPRIL
     Dosage: UNK

REACTIONS (15)
  - Swelling [Recovering/Resolving]
  - Cholecystectomy [Recovering/Resolving]
  - Hepatectomy [Recovering/Resolving]
  - Arthritis [Recovering/Resolving]
  - Joint swelling [Not Recovered/Not Resolved]
  - Arthralgia [Not Recovered/Not Resolved]
  - Pain in extremity [Not Recovered/Not Resolved]
  - Peripheral swelling [Not Recovered/Not Resolved]
  - Joint range of motion decreased [Not Recovered/Not Resolved]
  - Joint lock [Not Recovered/Not Resolved]
  - Sinusitis [Recovering/Resolving]
  - Hepatic enzyme increased [Recovering/Resolving]
  - Brain fog [Not Recovered/Not Resolved]
  - Gait disturbance [Recovering/Resolving]
  - Sensitivity to weather change [Unknown]

NARRATIVE: CASE EVENT DATE: 20230101
